FAERS Safety Report 19159243 (Version 1)
Quarter: 2021Q2

REPORT INFORMATION
  Report Type: Spontaneous
  Country: AU (occurrence: AU)
  Receive Date: 20210420
  Receipt Date: 20210420
  Transmission Date: 20210717
  Serious: Yes (Other)
  Sender: FDA-Public Use
  Company Number: AU-BAXTER-2021BAX007127

PATIENT
  Age: 55 Year
  Sex: Male

DRUGS (4)
  1. VIAFLO 5% GLUCOSE IV INFUSION 50 ML [Suspect]
     Active Substance: DEXTROSE
     Indication: MEDICATION DILUTION
     Route: 065
     Dates: end: 20210406
  2. OXALIPLATIN. [Suspect]
     Active Substance: OXALIPLATIN
     Dosage: RECOMMENCED INFUSION AT AN HALF RATE
     Route: 065
     Dates: start: 20210406, end: 20210406
  3. VIAFLO 5% GLUCOSE IV INFUSION 50 ML [Suspect]
     Active Substance: DEXTROSE
     Dosage: RECOMMENCED INFUSION AT AN HALF RATE
     Route: 065
     Dates: start: 20210406, end: 20210406
  4. OXALIPLATIN. [Suspect]
     Active Substance: OXALIPLATIN
     Indication: PRODUCT USED FOR UNKNOWN INDICATION
     Route: 065
     Dates: end: 20210406

REACTIONS (4)
  - Hyperhidrosis [Unknown]
  - Rash pruritic [Unknown]
  - Feeling abnormal [Unknown]
  - Erythema [Unknown]

NARRATIVE: CASE EVENT DATE: 20210406
